FAERS Safety Report 6600273-0 (Version None)
Quarter: 2010Q1

REPORT INFORMATION
  Report Type: 
  Country: None (occurrence: None)
  Receive Date: 20100217
  Receipt Date: 20100110
  Transmission Date: 20100710
  Serious: Yes (Other)
  Sender: FDA-Public Use
  Company Number: 2010AP000211

PATIENT
  Age: 67 Year
  Sex: Male

DRUGS (1)
  1. ACYCLOVIR [Suspect]
     Indication: HERPES ZOSTER
     Dosage: 800 MG; 5XD
     Dates: start: 20080701

REACTIONS (9)
  - APHASIA [None]
  - ASTERIXIS [None]
  - CEREBRAL ATROPHY [None]
  - ENCEPHALOPATHY [None]
  - HYPERTENSION [None]
  - MYOCLONUS [None]
  - NEUROTOXICITY [None]
  - OVERDOSE [None]
  - PARESIS [None]
